FAERS Safety Report 20113968 (Version 1)
Quarter: 2021Q4

REPORT INFORMATION
  Report Type: Spontaneous
  Country: TR (occurrence: TR)
  Receive Date: 20211125
  Receipt Date: 20211125
  Transmission Date: 20220303
  Serious: Yes (Hospitalization, Other)
  Sender: FDA-Public Use
  Company Number: TR-PFIZER INC-202101589163

PATIENT
  Age: 63 Year
  Sex: Female

DRUGS (9)
  1. XELJANZ [Suspect]
     Active Substance: TOFACITINIB CITRATE
     Dosage: 5 MG, 2X/DAY
     Dates: start: 2018
  2. GLIFOR [METFORMIN HYDROCHLORIDE] [Concomitant]
     Dosage: UNK, 2X/DAY
  3. EXFORGE [Concomitant]
     Active Substance: AMLODIPINE BESYLATE\VALSARTAN
     Dosage: UNK, 1X/DAY
  4. METOPROLOL [Concomitant]
     Active Substance: METOPROLOL
     Dosage: UNK, 1X/DAY
  5. REUMIL [Concomitant]
     Dosage: UNK, 1X/DAY
  6. COLCHICINE [Concomitant]
     Active Substance: COLCHICINE
     Dosage: UNK, 2X/DAY
  7. GABAPENTIN [Concomitant]
     Active Substance: GABAPENTIN
     Dosage: UNK, 2X/DAY
  8. NAPROSYN [Concomitant]
     Active Substance: NAPROXEN
     Dosage: UNK
  9. RANEKS [Concomitant]
     Dosage: UNK, 1X/DAY

REACTIONS (2)
  - Tuberculosis [Not Recovered/Not Resolved]
  - Back pain [Unknown]
